FAERS Safety Report 8543993-3 (Version None)
Quarter: 2012Q3

REPORT INFORMATION
  Report Type: 
  Country: None (occurrence: None)
  Receive Date: 20120727
  Receipt Date: 20120716
  Transmission Date: 20120928
  Serious: Yes (Hospitalization)
  Sender: FDA-Public Use
  Company Number: US-BAYER-2012-034635

PATIENT
  Age: 19 Year
  Sex: Female
  Weight: 70.295 kg

DRUGS (9)
  1. METHYLPREDNISOLONE [Concomitant]
     Dosage: 4 MG, DOSEPAK
     Route: 048
  2. NEOSPORIN [BACITRACIN ZINC,NEOMYCIN SULFATE,POLYMYXIN B SULFATE] [Concomitant]
     Dosage: UNK
     Route: 061
     Dates: start: 20100312
  3. TD [DIPHTHERIA AND TETANUS VACCINES] [Concomitant]
     Dosage: 0.5 ML, BOOSTER
     Route: 030
     Dates: start: 20100312
  4. HYDROCODONE BITARTRATE AND ACETAMINOPHEN [Concomitant]
     Indication: PAIN
     Dosage: 5 MG/500 MG 1-2 EVERY 4-6 HOURS AS NEEDED
     Route: 048
  5. AMOXICILLIN AND CLAVULANATE POTASSIUM [Concomitant]
     Dosage: 500 MG, BID
     Route: 048
  6. YAZ [Suspect]
     Indication: ACNE
     Dosage: UNK
     Dates: start: 20040101, end: 20100101
  7. AUGMENTIN '500' [Concomitant]
     Dosage: 500 MG, BID
     Route: 048
     Dates: start: 20100312
  8. AMOXICILLIN [Concomitant]
     Dosage: 500 MG, 2 CAPSULES TID
     Route: 048
  9. YAZ [Suspect]
     Indication: CONTRACEPTION

REACTIONS (6)
  - LOSS OF CONSCIOUSNESS [None]
  - CONVULSION [None]
  - PAIN [None]
  - CEREBROVASCULAR ACCIDENT [None]
  - STRABISMUS [None]
  - SUPERIOR SAGITTAL SINUS THROMBOSIS [None]
